FAERS Safety Report 10443940 (Version 1)
Quarter: 2014Q3

REPORT INFORMATION
  Report Type: Spontaneous
  Country: US (occurrence: US)
  Receive Date: 20140910
  Receipt Date: 20140910
  Transmission Date: 20150326
  Serious: No
  Sender: FDA-Public Use
  Company Number: US-TARO-2014P1000010

PATIENT
  Sex: Female
  Weight: 77.11 kg

DRUGS (6)
  1. WARFARIN SODIUM TABLETS USP 2.5MG [Suspect]
     Active Substance: WARFARIN SODIUM
     Route: 048
     Dates: start: 2012
  2. FISH OIL [Concomitant]
     Active Substance: FISH OIL
  3. MULTAQ [Suspect]
     Active Substance: DRONEDARONE
     Indication: ATRIAL FIBRILLATION
     Dates: start: 2012, end: 20140501
  4. WARFARIN SODIUM TABLETS USP 2.5MG [Suspect]
     Active Substance: WARFARIN SODIUM
     Indication: ATRIAL FIBRILLATION
     Route: 048
     Dates: start: 2012
  5. ATENOLOL. [Concomitant]
     Active Substance: ATENOLOL
  6. CENTRUM VITAMINS [Concomitant]

REACTIONS (4)
  - Alopecia [Recovering/Resolving]
  - Aspartate aminotransferase increased [Unknown]
  - Hepatic enzyme increased [Unknown]
  - International normalised ratio decreased [Unknown]

NARRATIVE: CASE EVENT DATE: 2012
